FAERS Safety Report 22031978 (Version 1)
Quarter: 2023Q1

REPORT INFORMATION
  Report Type: Spontaneous
  Country: BR (occurrence: BR)
  Receive Date: 20230224
  Receipt Date: 20230224
  Transmission Date: 20230418
  Serious: Yes (Other)
  Sender: FDA-Public Use
  Company Number: BR-TAKEDA-2023TUS019059

PATIENT
  Sex: Female
  Weight: 63 kg

DRUGS (3)
  1. MESALAMINE [Suspect]
     Active Substance: MESALAMINE
     Indication: Colitis
     Dosage: 500 MILLIGRAM
     Route: 065
  2. MESALAMINE [Suspect]
     Active Substance: MESALAMINE
     Dosage: 250 MILLIGRAM
     Route: 065
  3. MESALAMINE [Concomitant]
     Active Substance: MESALAMINE

REACTIONS (10)
  - Angle closure glaucoma [Unknown]
  - Visual impairment [Unknown]
  - Weight decreased [Unknown]
  - Inappropriate schedule of product discontinuation [Unknown]
  - Gastrointestinal disorder [Unknown]
  - Feeling abnormal [Unknown]
  - Malaise [Unknown]
  - Gastritis [Unknown]
  - Asthma [Unknown]
  - Nausea [Unknown]
